FAERS Safety Report 4350123-0 (Version None)
Quarter: 2004Q2

REPORT INFORMATION
  Report Type: 
  Country: None (occurrence: None)
  Receive Date: 20040426
  Receipt Date: 20040414
  Transmission Date: 20050107
  Serious: Yes (Death)
  Sender: FDA-Public Use
  Company Number: 163-20785-04020324

PATIENT
  Age: 89 Year
  Sex: Male

DRUGS (1)
  1. THALOMID [Suspect]
     Indication: MULTIPLE MYELOMA
     Dosage: 200 MG,DAILY, ORAL
     Route: 048
     Dates: start: 20031204, end: 20040101

REACTIONS (6)
  - BLOOD PRESSURE DECREASED [None]
  - MALIGNANT NEOPLASM PROGRESSION [None]
  - MULTIPLE MYELOMA [None]
  - RENAL FAILURE ACUTE [None]
  - SOMNOLENCE [None]
  - THERAPY NON-RESPONDER [None]
